FAERS Safety Report 8834115 (Version 1)
Quarter: 2012Q4

REPORT INFORMATION
  Report Type: 
  Country: US (occurrence: US)
  Receive Date: 20121010
  Receipt Date: 20121010
  Transmission Date: 20130627
  Serious: Yes (Other)
  Sender: FDA-Public Use
  Company Number: US-ASTRAZENECA-2012SE76027

PATIENT
  Age: 60 Year
  Sex: Female
  Weight: 65.8 kg

DRUGS (6)
  1. NEXIUM [Suspect]
     Indication: GASTROOESOPHAGEAL REFLUX DISEASE
     Route: 048
     Dates: end: 201208
  2. PRILOSEC [Suspect]
     Indication: GASTROOESOPHAGEAL REFLUX DISEASE
     Route: 048
     Dates: start: 201208
  3. ZETIA [Concomitant]
     Indication: BLOOD CHOLESTEROL ABNORMAL
     Route: 048
  4. VITAMIN D [Concomitant]
     Indication: VITAMIN SUPPLEMENTATION
     Dosage: 2000 units daily
     Route: 048
  5. ASPIRIN [Concomitant]
     Indication: BLOOD PRESSURE ABNORMAL
     Route: 048
  6. ALLEGRA [Concomitant]
     Indication: SEASONAL ALLERGY
     Route: 048

REACTIONS (6)
  - Breast cancer recurrent [Recovered/Resolved]
  - Gastrooesophageal reflux disease [Unknown]
  - Oropharyngeal pain [Unknown]
  - Dyspepsia [Unknown]
  - Ear pain [Unknown]
  - Drug ineffective [Unknown]
